FAERS Safety Report 6082250-4 (Version None)
Quarter: 2009Q1

REPORT INFORMATION
  Report Type: 
  Country: None (occurrence: None)
  Receive Date: 20090218
  Receipt Date: 20090209
  Transmission Date: 20090719
  Serious: Yes (Hospitalization)
  Sender: FDA-Public Use
  Company Number: US-ABBOTT-09P-163-0502612-00

PATIENT
  Sex: Female
  Weight: 47.216 kg

DRUGS (5)
  1. HUMIRA [Suspect]
     Indication: CROHN'S DISEASE
     Route: 058
     Dates: start: 20090123, end: 20090123
  2. HUMIRA [Suspect]
     Route: 058
     Dates: start: 20090206
  3. EVISTA [Concomitant]
     Indication: BONE DENSITY DECREASED
     Route: 048
  4. ASACOL [Concomitant]
     Indication: CROHN'S DISEASE
     Dosage: 4 TID
     Route: 048
  5. ENTOCORT EC [Concomitant]
     Indication: CROHN'S DISEASE
     Route: 048

REACTIONS (2)
  - DEHYDRATION [None]
  - DIARRHOEA [None]
